FAERS Safety Report 8259209-1 (Version None)
Quarter: 2012Q2

REPORT INFORMATION
  Report Type: 
  Country: None (occurrence: None)
  Receive Date: 20120404
  Receipt Date: 20120328
  Transmission Date: 20120825
  Serious: Yes (Other)
  Sender: FDA-Public Use
  Company Number: IE-FRI-1000029534

PATIENT
  Sex: Female

DRUGS (1)
  1. LEXAPRO [Suspect]
     Route: 048
     Dates: start: 20110801

REACTIONS (2)
  - VAGINAL HAEMORRHAGE [None]
  - CONTUSION [None]
